FAERS Safety Report 23799025 (Version 1)
Quarter: 2024Q2

REPORT INFORMATION
  Report Type: Other
  Country: GB (occurrence: GB)
  Receive Date: 20240430
  Receipt Date: 20240430
  Transmission Date: 20240716
  Serious: Yes (Other)
  Sender: FDA-Public Use
  Company Number: None

PATIENT

DRUGS (5)
  1. ROSUVASTATIN CALCIUM [Suspect]
     Active Substance: ROSUVASTATIN CALCIUM
     Indication: Hypercholesterolaemia
     Dosage: 20 MILLIGRAM
     Route: 065
     Dates: start: 20150526, end: 20240301
  2. ASPIRIN [Concomitant]
     Active Substance: ASPIRIN
     Indication: Myocardial ischaemia
     Dosage: UNK
     Route: 065
  3. LACTULOSE [Concomitant]
     Active Substance: LACTULOSE
     Indication: Hepatic cirrhosis
     Dosage: UNK
     Route: 065
  4. LEVOTHYROXINE [Concomitant]
     Active Substance: LEVOTHYROXINE\LEVOTHYROXINE SODIUM
     Indication: Hypothyroidism
     Dosage: UNK
     Route: 065
  5. RAMIPRIL [Concomitant]
     Active Substance: RAMIPRIL
     Indication: Myocardial ischaemia
     Dosage: UNK
     Route: 065

REACTIONS (6)
  - Oedema peripheral [Recovering/Resolving]
  - Oedema [Recovering/Resolving]
  - Arthralgia [Recovering/Resolving]
  - Dyspnoea [Recovering/Resolving]
  - Fatigue [Recovering/Resolving]
  - Face oedema [Recovering/Resolving]

NARRATIVE: CASE EVENT DATE: 20240101
